FAERS Safety Report 19820235 (Version 1)
Quarter: 2021Q3

REPORT INFORMATION
  Report Type: Spontaneous
  Country: US (occurrence: US)
  Receive Date: 20210910
  Receipt Date: 20210910
  Transmission Date: 20211014
  Serious: Yes (Other)
  Sender: FDA-Public Use
  Company Number: None

PATIENT
  Age: 63 Year
  Sex: Female
  Weight: 86.4 kg

DRUGS (9)
  1. REGEN?COV [Suspect]
     Active Substance: CASIRIVIMAB\IMDEVIMAB
     Indication: COVID-19
     Route: 042
     Dates: start: 20210828, end: 20210828
  2. COENZYME Q10 [Concomitant]
     Active Substance: DIETARY SUPPLEMENT\UBIDECARENONE
  3. NAC [Concomitant]
  4. ASPIRIN. [Concomitant]
     Active Substance: ASPIRIN
  5. VITAMINS  B, C, C [Concomitant]
  6. SYNTHROID [Concomitant]
     Active Substance: LEVOTHYROXINE SODIUM
  7. RED YEAST RICE [Concomitant]
     Active Substance: DIETARY SUPPLEMENT
  8. ZINC. [Concomitant]
     Active Substance: ZINC
  9. BUPROPION. [Concomitant]
     Active Substance: BUPROPION

REACTIONS (2)
  - Blood pressure fluctuation [None]
  - Dizziness [None]

NARRATIVE: CASE EVENT DATE: 20210828
